FAERS Safety Report 5996237-0 (Version None)
Quarter: 2008Q4

REPORT INFORMATION
  Report Type: 
  Country: None (occurrence: None)
  Receive Date: 20081212
  Receipt Date: 20081014
  Transmission Date: 20090506
  Serious: No
  Sender: FDA-Public Use
  Company Number: US-ABBOTT-08P-163-0481562-00

PATIENT
  Sex: Female

DRUGS (2)
  1. HUMIRA [Suspect]
     Indication: RHEUMATOID ARTHRITIS
     Route: 058
     Dates: start: 20070101
  2. PENICILLIN [Concomitant]
     Indication: PROPHYLAXIS
     Dates: start: 20081011

REACTIONS (2)
  - HAEMORRHAGE [None]
  - TOOTHACHE [None]
